FAERS Safety Report 4401620-0 (Version None)
Quarter: 2004Q3

REPORT INFORMATION
  Report Type: 
  Country: None (occurrence: None)
  Receive Date: 20040719
  Receipt Date: 20040614
  Transmission Date: 20050211
  Serious: Yes (Hospitalization)
  Sender: FDA-Public Use
  Company Number: MX-ROCHE-371265

PATIENT
  Age: 35 Year
  Sex: Female

DRUGS (5)
  1. RIVOTRIL [Suspect]
     Indication: INSOMNIA
     Route: 048
     Dates: end: 20040615
  2. RIVOTRIL [Suspect]
     Route: 048
  3. AUROREX [Suspect]
     Indication: DEPRESSION
     Route: 048
     Dates: start: 20040601, end: 20040615
  4. PAXIL [Suspect]
     Indication: DEPRESSION
     Route: 048
     Dates: start: 20040415, end: 20040618
  5. WELLBUTRIN [Concomitant]

REACTIONS (4)
  - DEPRESSION [None]
  - DIFFICULTY IN WALKING [None]
  - FATIGUE [None]
  - MENTAL DISORDER [None]
